FAERS Safety Report 20872611 (Version 4)
Quarter: 2025Q3

REPORT INFORMATION
  Report Type: Spontaneous
  Country: US (occurrence: US)
  Receive Date: 20220525
  Receipt Date: 20250710
  Transmission Date: 20251021
  Serious: Yes (Death, Other)
  Sender: JAZZ
  Company Number: US-GW PHARMA-2022-US-017458

PATIENT
  Sex: Female

DRUGS (5)
  1. EPIDIOLEX [Suspect]
     Active Substance: CANNABIDIOL
     Indication: Lennox-Gastaut syndrome
     Route: 048
     Dates: start: 20210901
  2. EPIDIOLEX [Suspect]
     Active Substance: CANNABIDIOL
     Dosage: 2.3 MILLILITER, BID
  3. LEVETIRACETAM [Concomitant]
     Active Substance: LEVETIRACETAM
  4. LORAZEPAM [Concomitant]
     Active Substance: LORAZEPAM
  5. NAYZILAM [Concomitant]
     Active Substance: MIDAZOLAM

REACTIONS (1)
  - Cardiac failure [Fatal]
